FAERS Safety Report 17191803 (Version 1)
Quarter: 2019Q4

REPORT INFORMATION
  Report Type: Spontaneous
  Country: US (occurrence: US)
  Receive Date: 20191223
  Receipt Date: 20191223
  Transmission Date: 20200122
  Serious: No
  Sender: FDA-Public Use
  Company Number: US-ENDO PHARMACEUTICALS INC-2019-100054

PATIENT
  Sex: Male

DRUGS (2)
  1. XIAFLEX [Suspect]
     Active Substance: COLLAGENASE CLOSTRIDIUM HISTOLYTICUM
     Indication: PEYRONIE^S DISEASE
     Dosage: UNK UNKNOWN, CYCLE 1, INJECTION 1
     Route: 026
     Dates: start: 20190109
  2. XIAFLEX [Suspect]
     Active Substance: COLLAGENASE CLOSTRIDIUM HISTOLYTICUM
     Dosage: UNK UNKNOWN, CYCLE 1, INJECTION 2
     Route: 026
     Dates: start: 20190111

REACTIONS (7)
  - Penile blister [Not Recovered/Not Resolved]
  - Penile pain [Not Recovered/Not Resolved]
  - Penile contusion [Not Recovered/Not Resolved]
  - Pruritus [Not Recovered/Not Resolved]
  - Penile swelling [Not Recovered/Not Resolved]
  - Injection site discomfort [Not Recovered/Not Resolved]
  - Penile erythema [Not Recovered/Not Resolved]

NARRATIVE: CASE EVENT DATE: 20190110
